FAERS Safety Report 16470306 (Version 3)
Quarter: 2019Q3

REPORT INFORMATION
  Report Type: Spontaneous
  Country: US (occurrence: US)
  Receive Date: 20190624
  Receipt Date: 20190830
  Transmission Date: 20191004
  Serious: Yes (Other)
  Sender: FDA-Public Use
  Company Number: US-BAYER-2019-111619

PATIENT
  Age: 50 Year
  Sex: Female

DRUGS (4)
  1. CLIMARA [Suspect]
     Active Substance: ESTRADIOL
     Indication: MENOPAUSAL DISORDER
     Dosage: UNK
     Route: 062
     Dates: start: 20190602
  2. NORTRIPTYLINE [Concomitant]
     Active Substance: NORTRIPTYLINE
     Indication: PAIN
     Dosage: UNK
     Dates: start: 201604
  3. PROMETRIUM [Concomitant]
     Active Substance: PROGESTERONE
     Indication: MENOPAUSAL SYMPTOMS
     Dosage: UNK
     Dates: start: 201603
  4. CLIMARA [Suspect]
     Active Substance: ESTRADIOL
     Indication: MENOPAUSAL DISORDER
     Dosage: UNK
     Dates: start: 20190526, end: 20190602

REACTIONS (13)
  - Malaise [None]
  - Hot flush [None]
  - Migraine [Recovering/Resolving]
  - Nausea [None]
  - Suspected product quality issue [None]
  - Postmenopausal haemorrhage [Not Recovered/Not Resolved]
  - Hot flush [Recovered/Resolved]
  - Drug withdrawal syndrome [Recovering/Resolving]
  - Nausea [Recovered/Resolved]
  - Suspected product quality issue [None]
  - Product adhesion issue [None]
  - Incorrect product administration duration [None]
  - Inappropriate schedule of product administration [None]

NARRATIVE: CASE EVENT DATE: 20190527
